FAERS Safety Report 23898583 (Version 1)
Quarter: 2024Q2

REPORT INFORMATION
  Report Type: Report from Study
  Country: BR (occurrence: BR)
  Receive Date: 20240525
  Receipt Date: 20240525
  Transmission Date: 20240716
  Serious: Yes (Other)
  Sender: FDA-Public Use
  Company Number: BR-JNJFOC-20240554155

PATIENT
  Age: 61 Year
  Sex: Female
  Weight: 82 kg

DRUGS (1)
  1. REMICADE [Suspect]
     Active Substance: INFLIXIMAB
     Indication: Rheumatoid arthritis
     Dosage: LAST INFUSION ON 29-JAN-2024
     Route: 041
     Dates: start: 20161018

REACTIONS (2)
  - Rheumatoid arthritis [Unknown]
  - Dengue fever [Unknown]

NARRATIVE: CASE EVENT DATE: 20240101
